FAERS Safety Report 9709501 (Version 3)
Quarter: 2013Q4

REPORT INFORMATION
  Report Type: Spontaneous
  Country: US (occurrence: US)
  Receive Date: 20131126
  Receipt Date: 20131216
  Transmission Date: 20140711
  Serious: No
  Sender: FDA-Public Use
  Company Number: US-BIOGENIDEC-2013BI109894

PATIENT
  Age: 66 Year
  Sex: Female

DRUGS (4)
  1. TYSABRI [Suspect]
     Indication: MULTIPLE SCLEROSIS
     Route: 042
     Dates: start: 20070731
  2. AVONEX [Concomitant]
     Indication: MULTIPLE SCLEROSIS
     Route: 030
  3. AVONEX [Concomitant]
     Indication: MULTIPLE SCLEROSIS
     Route: 030
     Dates: start: 20010802
  4. BENSICARE (NOS) [Concomitant]
     Indication: EYE INFLAMMATION
     Route: 047

REACTIONS (4)
  - Eye disorder [Unknown]
  - Cataract [Recovered/Resolved]
  - Multiple sclerosis [Recovered/Resolved]
  - Eye inflammation [Unknown]
